FAERS Safety Report 13579535 (Version 1)
Quarter: 2017Q2

REPORT INFORMATION
  Report Type: Spontaneous
  Country: JP (occurrence: JP)
  Receive Date: 20170525
  Receipt Date: 20170525
  Transmission Date: 20170830
  Serious: Yes (Death, Hospitalization)
  Sender: FDA-Public Use
  Company Number: JP-TEVA-770989ROM

PATIENT
  Age: 8 Decade
  Sex: Female

DRUGS (2)
  1. CISPLATIN. [Suspect]
     Active Substance: CISPLATIN
     Indication: LUNG ADENOCARCINOMA STAGE III
     Dosage: 80MG/M2 (ON 1ST DAY OF ADJUVANT CHEMOTHERAPY)
     Route: 065
  2. VINORELBINE [Concomitant]
     Active Substance: VINORELBINE\VINORELBINE TARTRATE
     Indication: LUNG ADENOCARCINOMA STAGE III
     Dosage: 25MG/M2 WAS ADMINISTERED ON THE FIRST DAY
     Route: 065

REACTIONS (10)
  - Systemic infection [Fatal]
  - Acute kidney injury [Unknown]
  - Multiple organ dysfunction syndrome [Fatal]
  - Platelet count increased [Unknown]
  - Hypoacusis [Unknown]
  - Diarrhoea [Unknown]
  - Neutrophil count increased [Unknown]
  - Vomiting [Unknown]
  - Bone marrow failure [Unknown]
  - Hepatic enzyme increased [Unknown]
